FAERS Safety Report 5952312-8 (Version None)
Quarter: 2008Q4

REPORT INFORMATION
  Report Type: 
  Country: None (occurrence: None)
  Receive Date: 20081113
  Receipt Date: 20081103
  Transmission Date: 20090506
  Serious: Yes (Hospitalization)
  Sender: FDA-Public Use
  Company Number: IT-WATSON-2008-06495

PATIENT
  Age: 81 Year
  Sex: Female

DRUGS (4)
  1. ISONIAZID [Suspect]
     Indication: TUBERCULOUS TENOSYNOVITIS
     Dosage: 300 MG, UNK
     Route: 042
  2. RIFAMPIN [Suspect]
     Indication: TUBERCULOUS TENOSYNOVITIS
     Dosage: 600 MG, UNK
     Route: 042
  3. ETHAMBUTOL HYDROCHLORIDE [Suspect]
     Indication: TUBERCULOUS TENOSYNOVITIS
     Dosage: 1000 MG, UNK
     Route: 042
  4. LINEZOLID [Suspect]
     Indication: TUBERCULOUS TENOSYNOVITIS
     Dosage: 600 MG, BID
     Route: 042

REACTIONS (2)
  - DRUG INTERACTION [None]
  - LACTIC ACIDOSIS [None]
